FAERS Safety Report 8113698-1 (Version None)
Quarter: 2012Q1

REPORT INFORMATION
  Report Type: 
  Country: None (occurrence: None)
  Receive Date: 20120203
  Receipt Date: 20120131
  Transmission Date: 20120608
  Serious: Yes (Other)
  Sender: FDA-Public Use
  Company Number: US-AMGEN-USASP2012006442

PATIENT
  Age: 60 Year

DRUGS (2)
  1. PROLIA [Suspect]
     Indication: PRODUCT USED FOR UNKNOWN INDICATION
     Dosage: UNK
     Dates: start: 20100901, end: 20100901
  2. PROLIA [Suspect]
     Dosage: UNK UNK, Q6MO
     Dates: start: 20110301, end: 20110301

REACTIONS (1)
  - MONOCLONAL GAMMOPATHY [None]
